FAERS Safety Report 10145171 (Version 1)
Quarter: 2014Q2

REPORT INFORMATION
  Report Type: Spontaneous
  Country: US (occurrence: US)
  Receive Date: 20140501
  Receipt Date: 20140501
  Transmission Date: 20141212
  Serious: Yes (Hospitalization, Other)
  Sender: FDA-Public Use
  Company Number: US-AMGEN INC.-USASP2014030884

PATIENT
  Age: 40 Year
  Sex: Female

DRUGS (1)
  1. ENBREL [Suspect]
     Indication: RHEUMATOID ARTHRITIS
     Dosage: 50 MG, QWK
     Route: 065
     Dates: start: 20060711

REACTIONS (11)
  - Generalised tonic-clonic seizure [Recovered/Resolved]
  - Complex partial seizures [Not Recovered/Not Resolved]
  - Cutaneous lupus erythematosus [Unknown]
  - DNA antibody positive [Unknown]
  - Complement factor C3 decreased [Unknown]
  - Double stranded DNA antibody positive [Unknown]
  - Hypoaesthesia [Not Recovered/Not Resolved]
  - Nausea [Not Recovered/Not Resolved]
  - Limb discomfort [Not Recovered/Not Resolved]
  - Poor peripheral circulation [Not Recovered/Not Resolved]
  - Paraesthesia [Not Recovered/Not Resolved]
